FAERS Safety Report 25044273 (Version 1)
Quarter: 2025Q1

REPORT INFORMATION
  Report Type: Spontaneous
  Country: CN (occurrence: CN)
  Receive Date: 20250306
  Receipt Date: 20250306
  Transmission Date: 20250409
  Serious: Yes (Other)
  Sender: ALEXION PHARMACEUTICALS
  Company Number: CN-ASTRAZENECA-202503CHN000102CN

PATIENT
  Age: 58 Year
  Weight: 60 kg

DRUGS (1)
  1. BRILINTA [Suspect]
     Active Substance: TICAGRELOR
     Indication: Coronary artery disease
     Dosage: 90 MILLIGRAM, BID

REACTIONS (7)
  - Hypoaesthesia oral [Recovered/Resolved]
  - Swelling face [Recovered/Resolved]
  - Dyspnoea [Recovered/Resolved]
  - Hypoaesthesia [Recovered/Resolved]
  - Lip swelling [Recovered/Resolved]
  - Wheezing [Recovered/Resolved]
  - Drug hypersensitivity [Recovered/Resolved]
